FAERS Safety Report 23679016 (Version 1)
Quarter: 2024Q1

REPORT INFORMATION
  Report Type: Spontaneous
  Country: SE (occurrence: SE)
  Receive Date: 20240327
  Receipt Date: 20240327
  Transmission Date: 20240410
  Serious: Yes (Other)
  Sender: FDA-Public Use
  Company Number: SE-TEVA-VS-3174274

PATIENT
  Age: 36 Year
  Sex: Male

DRUGS (1)
  1. OLANZAPINE [Suspect]
     Active Substance: OLANZAPINE
     Indication: Product used for unknown indication
     Route: 065
     Dates: end: 20190515

REACTIONS (4)
  - Psychotic disorder [Unknown]
  - Loss of libido [Unknown]
  - Gynaecomastia [Unknown]
  - Apathy [Unknown]

NARRATIVE: CASE EVENT DATE: 20190429
